FAERS Safety Report 6873766-9 (Version None)
Quarter: 2010Q3

REPORT INFORMATION
  Report Type: 
  Country: None (occurrence: None)
  Receive Date: 20100723
  Receipt Date: 20090318
  Transmission Date: 20110219
  Serious: No
  Sender: FDA-Public Use
  Company Number: US-PFIZER INC-2009186130

PATIENT
  Sex: Female
  Weight: 48.98 kg

DRUGS (3)
  1. CHANTIX [Suspect]
     Indication: SMOKING CESSATION THERAPY
     Dosage: 0.5 MG, 1X/DAY
     Dates: start: 20090202, end: 20090201
  2. ACIPHEX [Concomitant]
     Dosage: UNK
  3. ROBINUL [Concomitant]
     Dosage: UNK

REACTIONS (4)
  - INSOMNIA [None]
  - MALAISE [None]
  - NAUSEA [None]
  - VOMITING [None]
